FAERS Safety Report 9836185 (Version 2)
Quarter: 2014Q2

REPORT INFORMATION
  Report Type: Spontaneous
  Country: DE (occurrence: DE)
  Receive Date: 20140123
  Receipt Date: 20140609
  Transmission Date: 20141212
  Serious: Yes (Other)
  Sender: FDA-Public Use
  Company Number: DE-ROCHE-1337925

PATIENT
  Age: 72 Year
  Sex: Male

DRUGS (16)
  1. LUCENTIS [Suspect]
     Indication: DIABETIC RETINAL OEDEMA
     Route: 050
     Dates: start: 20131128
  2. LUCENTIS [Suspect]
     Route: 050
     Dates: start: 20131118
  3. AMLODIPINE [Concomitant]
  4. VALSARTAN [Concomitant]
  5. GALANTAMINE [Concomitant]
  6. DECOSTRIOL [Concomitant]
  7. TORASEMID [Concomitant]
     Route: 065
  8. MIRTAZAPIN [Concomitant]
  9. PANTOPRAZOL [Concomitant]
  10. TAMSULOSIN [Concomitant]
  11. L-THYROXIN [Concomitant]
  12. ASS [Concomitant]
  13. ALDACTONE (UNITED STATES) [Concomitant]
  14. SIMVASTATIN [Concomitant]
  15. METFORMIN [Concomitant]
     Route: 065
  16. JANUVIA [Concomitant]

REACTIONS (2)
  - Cerebral infarction [Unknown]
  - Ischaemic stroke [Unknown]
